FAERS Safety Report 23914294 (Version 1)
Quarter: 2024Q2

REPORT INFORMATION
  Report Type: Spontaneous
  Country: AU (occurrence: AU)
  Receive Date: 20240529
  Receipt Date: 20240529
  Transmission Date: 20240716
  Serious: Yes (Other)
  Sender: FDA-Public Use
  Company Number: AU-002147023-NVSC2024AU109359

PATIENT
  Age: 28 Year
  Sex: Female

DRUGS (1)
  1. OFATUMUMAB [Suspect]
     Active Substance: OFATUMUMAB
     Indication: Relapsing-remitting multiple sclerosis
     Dosage: UNK
     Route: 065

REACTIONS (6)
  - Undifferentiated spondyloarthritis [Unknown]
  - Multiple sclerosis [Unknown]
  - Dactylitis [Unknown]
  - Enthesopathy [Unknown]
  - Axial spondyloarthritis [Unknown]
  - Arthralgia [Unknown]
